FAERS Safety Report 9230559 (Version 1)
Quarter: 2013Q2

REPORT INFORMATION
  Report Type: Spontaneous
  Country: US (occurrence: US)
  Receive Date: 20130415
  Receipt Date: 20130415
  Transmission Date: 20140414
  Serious: Yes (Other)
  Sender: FDA-Public Use
  Company Number: US-RANBAXY-2010US-37943

PATIENT
  Age: 67 Year
  Sex: Male

DRUGS (9)
  1. MYCOPHENOLATE MOFETIL [Suspect]
     Indication: IMMUNOSUPPRESSANT DRUG THERAPY
     Dosage: 2000 MG/DAY
     Route: 065
  2. MYCOPHENOLATE MOFETIL [Suspect]
     Dosage: 1000 MG/DAY
     Route: 065
  3. TACROLIMUS [Suspect]
     Indication: IMMUNOSUPPRESSANT DRUG THERAPY
     Dosage: 1.5 MG/DAY
     Route: 065
  4. TACROLIMUS [Suspect]
     Dosage: 0.5 MG/DAY
     Route: 065
  5. PREDNISONE [Suspect]
     Indication: IMMUNOSUPPRESSANT DRUG THERAPY
     Dosage: 80 MG/DAY
     Route: 065
  6. PREDNISONE [Suspect]
     Dosage: 10 MG/DAY
     Route: 065
  7. PREDNISONE [Suspect]
     Dosage: 5 MG/DAY
     Route: 065
  8. ACYCLOVIR [Suspect]
     Indication: PRODUCT USED FOR UNKNOWN INDICATION
     Dosage: UNK
     Route: 065
  9. POSACONAZOLE [Suspect]
     Indication: PRODUCT USED FOR UNKNOWN INDICATION
     Dosage: UNK
     Route: 065

REACTIONS (1)
  - Neutrophil Pelger-Huet anomaly present [Recovered/Resolved]
